FAERS Safety Report 10273018 (Version 1)
Quarter: 2014Q2

REPORT INFORMATION
  Report Type: Spontaneous
  Country: GB (occurrence: None)
  Receive Date: 20140630
  Receipt Date: 20140630
  Transmission Date: 20141212
  Serious: Yes (Life-Threatening, Hospitalization, Disabling, Other)
  Sender: FDA-Public Use
  Company Number: GB-DEXPHARM-20140363

PATIENT
  Age: 41 Year
  Sex: Male

DRUGS (7)
  1. DICLOFENAC [Suspect]
     Indication: BACK PAIN
     Dosage: DOSAGE TEXT: AS NECESSARY UP TO THREE TIMES DAILY.?DOSE: 50 MG?SEP. DOSAGES / INTERVAL: 1 IN 1 AS NECESSARY
     Route: 048
     Dates: start: 2004
  2. BENDROFLUMETHIAZIDE [Concomitant]
  3. CETIRIZINE [Concomitant]
  4. CLENIL MODULITE [Concomitant]
  5. DOXAZOSIN [Concomitant]
  6. OMEPRAZOLE [Concomitant]
  7. SALBUTAMOL [Concomitant]

REACTIONS (3)
  - Aphasia [None]
  - Hypertension [None]
  - Haemorrhagic stroke [None]
